FAERS Safety Report 17657247 (Version 1)
Quarter: 2020Q2

REPORT INFORMATION
  Report Type: Spontaneous
  Country: US (occurrence: US)
  Receive Date: 20200410
  Receipt Date: 20200410
  Transmission Date: 20200713
  Serious: Yes (Life-Threatening, Hospitalization)
  Sender: FDA-Public Use
  Company Number: US-BAYER-2020-057266

PATIENT
  Age: 68 Year
  Sex: Female

DRUGS (2)
  1. ACETYLSALICYLIC ACID [Suspect]
     Active Substance: ASPIRIN
  2. TICAGRELOR. [Interacting]
     Active Substance: TICAGRELOR

REACTIONS (2)
  - Labelled drug-drug interaction medication error [None]
  - Subarachnoid haemorrhage [None]
